FAERS Safety Report 4476836-8 (Version None)
Quarter: 2004Q3

REPORT INFORMATION
  Report Type: 
  Country: None (occurrence: None)
  Receive Date: 20040923
  Receipt Date: 20040615
  Transmission Date: 20050211
  Serious: No
  Sender: FDA-Public Use
  Company Number: USA040670279

PATIENT
  Age: 69 Year
  Sex: Female
  Weight: 33 kg

DRUGS (5)
  1. FORTEO [Suspect]
     Indication: OSTEOPOROSIS
     Dates: start: 30031201
  2. NITROQUICK (GLYCERYL TRINITRATE) [Concomitant]
  3. ZANTAC [Concomitant]
  4. KLONOPIN [Concomitant]
  5. ASPIRIN [Concomitant]

REACTIONS (1)
  - OESOPHAGEAL PAIN [None]
